FAERS Safety Report 10149912 (Version 1)
Quarter: 2014Q2

REPORT INFORMATION
  Report Type: Report from Study
  Country: BR (occurrence: BR)
  Receive Date: 20140502
  Receipt Date: 20140502
  Transmission Date: 20141212
  Serious: Yes (Death, Hospitalization, Other)
  Sender: FDA-Public Use
  Company Number: PHHY2014BR051727

PATIENT
  Sex: Female
  Weight: 48 kg

DRUGS (3)
  1. GALVUS MET [Suspect]
     Indication: DIABETES MELLITUS
     Dosage: (UNKNOWN MG METFORMIN AND 50MG VILDAGLIPTIN: AS REPORTED), QD
     Route: 048
     Dates: start: 2008, end: 201010
  2. METFORMIN [Suspect]
     Dosage: UNK UKN, UNK
  3. INSULIN [Concomitant]
     Indication: DIABETES MELLITUS
     Dosage: UNK UKN, TID
     Dates: end: 201010

REACTIONS (6)
  - Multi-organ failure [Fatal]
  - Malaise [Fatal]
  - Eating disorder [Fatal]
  - Vision blurred [Unknown]
  - Blood pressure inadequately controlled [Unknown]
  - Weight decreased [Unknown]
